FAERS Safety Report 4350316-2 (Version None)
Quarter: 2004Q2

REPORT INFORMATION
  Report Type: 
  Country: None (occurrence: None)
  Receive Date: 20040427
  Receipt Date: 20040412
  Transmission Date: 20050107
  Serious: Yes (Death)
  Sender: FDA-Public Use
  Company Number: USA-2004-0014778

PATIENT
  Age: 28 Year
  Sex: Male

DRUGS (1)
  1. OXYCONTIN [Suspect]
     Dosage: 80 MG, BID

REACTIONS (4)
  - ACUTE RESPIRATORY FAILURE [None]
  - NASOPHARYNGITIS [None]
  - PNEUMONIA INFLUENZAL [None]
  - RESPIRATORY DISORDER [None]
